FAERS Safety Report 13458405 (Version 2)
Quarter: 2017Q2

REPORT INFORMATION
  Report Type: Spontaneous
  Country: US (occurrence: US)
  Receive Date: 20170419
  Receipt Date: 20170502
  Transmission Date: 20170830
  Serious: Yes (Other)
  Sender: FDA-Public Use
  Company Number: US-AKORN PHARMACEUTICALS-2017AKN00445

PATIENT
  Sex: Male
  Weight: 81.63 kg

DRUGS (6)
  1. MYORISAN [Suspect]
     Active Substance: ISOTRETINOIN
     Indication: ACNE CONGLOBATA
     Dosage: 40 MG, 2X/DAY
     Route: 048
     Dates: start: 20170119, end: 20170213
  2. CLINDAMYCIN. [Concomitant]
     Active Substance: CLINDAMYCIN
  3. DOXYCYCLINE. [Concomitant]
     Active Substance: DOXYCYCLINE
  4. CLOBESTASOL [Concomitant]
  5. MINOCYCLINE [Concomitant]
     Active Substance: MINOCYCLINE\MINOCYCLINE HYDROCHLORIDE
  6. KEFLEX [Concomitant]
     Active Substance: CEPHALEXIN

REACTIONS (2)
  - Depression [Unknown]
  - Feeling abnormal [Unknown]

NARRATIVE: CASE EVENT DATE: 2017
